FAERS Safety Report 18649981 (Version 9)
Quarter: 2021Q3

REPORT INFORMATION
  Report Type: Report from Study
  Country: BR (occurrence: BR)
  Receive Date: 20201222
  Receipt Date: 20210802
  Transmission Date: 20211014
  Serious: Yes (Life-Threatening, Hospitalization, Other)
  Sender: FDA-Public Use
  Company Number: NVSC2020BR335533

PATIENT
  Age: 48 Year
  Sex: Male

DRUGS (15)
  1. QUETIAPINE. [Concomitant]
     Active Substance: QUETIAPINE
     Indication: SEDATION
     Dosage: 50 MG, Q8H
     Route: 065
     Dates: start: 20201129
  2. ROCURONIUM [Concomitant]
     Active Substance: ROCURONIUM BROMIDE
     Indication: SEDATION
     Dosage: 50 MG, Q8H
     Route: 065
  3. SECUKINUMAB. [Suspect]
     Active Substance: SECUKINUMAB
     Indication: COVID-19
     Dosage: UNK
     Route: 058
     Dates: start: 20201121, end: 20201128
  4. OMEPRAZOLE. [Concomitant]
     Active Substance: OMEPRAZOLE
     Indication: PROPHYLAXIS
     Dosage: 40 MG, Q24H
     Route: 065
     Dates: start: 20201207
  5. PANTOPRAZOLE [Concomitant]
     Active Substance: PANTOPRAZOLE
     Indication: PROPHYLAXIS
     Dosage: 40 MG
     Route: 065
     Dates: start: 20201122
  6. INSULIN REGULAR [Concomitant]
     Active Substance: INSULIN NOS
     Indication: PROPHYLAXIS
     Dosage: 1 UI/ ML, CONTINUOUS
     Route: 065
     Dates: start: 20201125
  7. FENTANIL [Concomitant]
     Active Substance: FENTANYL
     Indication: SEDATION
     Dosage: 0,05 MG/ML, CONTINUOUS USE
     Route: 065
     Dates: start: 20201122
  8. MIDAZOLAM. [Concomitant]
     Active Substance: MIDAZOLAM
     Indication: SEDATION
     Dosage: 5 MG/ML, CONTINUOUS USE
     Route: 065
     Dates: start: 20201122
  9. FUROSEMIDE. [Concomitant]
     Active Substance: FUROSEMIDE
     Indication: PROPHYLAXIS
     Dosage: 20 MG, Q12H
     Route: 065
     Dates: start: 20201130
  10. METHADONE [Concomitant]
     Active Substance: METHADONE HYDROCHLORIDE
     Indication: SEDATION
     Dosage: 10 MG, Q4H
     Route: 065
     Dates: start: 20201129
  11. SALBUTAMOL [Concomitant]
     Active Substance: ALBUTEROL
     Indication: PROPHYLAXIS
     Dosage: 100 MCG? 8 JETS, EVERY 4 HOURS
     Route: 065
     Dates: start: 20201207
  12. IPRATROPIUM [Concomitant]
     Active Substance: IPRATROPIUM
     Indication: PROPHYLAXIS
     Dosage: 20 MCG ?4 JETS, EVERY 4 HOURS
     Route: 065
     Dates: start: 20201206
  13. HYDROCORTISONE. [Concomitant]
     Active Substance: HYDROCORTISONE
     Indication: PROPHYLAXIS
     Dosage: 100 MG, Q8H
     Route: 065
     Dates: start: 20201207
  14. DIAZEPAM. [Concomitant]
     Active Substance: DIAZEPAM
     Indication: SEDATION
     Dosage: 10 MG
     Route: 065
     Dates: start: 20201129
  15. SECUKINUMAB. [Suspect]
     Active Substance: SECUKINUMAB
     Indication: SEVERE ACUTE RESPIRATORY SYNDROME

REACTIONS (4)
  - Septic shock [Recovered/Resolved]
  - Neuropathy peripheral [Unknown]
  - Pulmonary fibrosis [Recovered/Resolved with Sequelae]
  - Pneumonia [Recovered/Resolved]

NARRATIVE: CASE EVENT DATE: 20201130
